FAERS Safety Report 8329490-9 (Version None)
Quarter: 2012Q2

REPORT INFORMATION
  Report Type: 
  Country: None (occurrence: None)
  Receive Date: 20120502
  Receipt Date: 20120420
  Transmission Date: 20120825
  Serious: Yes (Other)
  Sender: FDA-Public Use
  Company Number: US-ROCHE-1062108

PATIENT
  Sex: Female

DRUGS (6)
  1. CALCIUM CARBONATE [Concomitant]
     Indication: ABDOMINAL DISCOMFORT
     Route: 048
  2. MILK OF MAGNESIA TAB [Concomitant]
     Indication: ABDOMINAL DISTENSION
     Route: 048
     Dates: start: 20120420, end: 20120420
  3. IXABEPILONE [Concomitant]
     Indication: BREAST CANCER METASTATIC
     Route: 042
     Dates: start: 20120321
  4. XELODA [Suspect]
     Indication: BREAST CANCER METASTATIC
     Route: 048
     Dates: start: 20120321
  5. ZOFRAN [Concomitant]
     Indication: NAUSEA
     Route: 048
  6. TRAMADOL HCL [Concomitant]
     Indication: PAIN
     Route: 048

REACTIONS (6)
  - DIZZINESS [None]
  - ABDOMINAL DISCOMFORT [None]
  - DISEASE PROGRESSION [None]
  - DIARRHOEA [None]
  - NAUSEA [None]
  - INFLUENZA LIKE ILLNESS [None]
